FAERS Safety Report 10014976 (Version 2)
Quarter: 2014Q2

REPORT INFORMATION
  Report Type: Spontaneous
  Country: US (occurrence: US)
  Receive Date: 20140317
  Receipt Date: 20140528
  Transmission Date: 20141212
  Serious: Yes (Hospitalization)
  Sender: FDA-Public Use
  Company Number: US-B.I. PHARMACEUTICALS,INC./RIDGEFIELD-2014-BI-11028BP

PATIENT
  Age: 58 Year
  Sex: Female

DRUGS (1)
  1. MICARDIS [Suspect]
     Indication: PRODUCT USED FOR UNKNOWN INDICATION
     Dosage: 80 MG
     Route: 048
     Dates: start: 201109

REACTIONS (3)
  - Blood magnesium decreased [Unknown]
  - Muscular weakness [Unknown]
  - Asthenia [Unknown]
